FAERS Safety Report 4957861-7 (Version None)
Quarter: 2006Q1

REPORT INFORMATION
  Report Type: 
  Country: None (occurrence: None)
  Receive Date: 20060324
  Receipt Date: 20060318
  Transmission Date: 20060701
  Serious: Yes (Disabling, Other)
  Sender: FDA-Public Use
  Company Number: 2006039066

PATIENT
  Age: 59 Year
  Sex: Female
  Weight: 58.0604 kg

DRUGS (5)
  1. LYRICA [Suspect]
     Indication: ABDOMINAL DISCOMFORT
     Dosage: 75 MG (75 MG, 1 IN 1 D), ORAL
     Route: 048
     Dates: start: 20060301, end: 20060301
  2. COPAXONE [Concomitant]
  3. EFFEXOR (VENLAFAXINE HYDOCHLORIDE) [Concomitant]
  4. VITAMINS (VITAMINS) [Concomitant]
  5. MIRALAX [Concomitant]

REACTIONS (9)
  - ASTHENIA [None]
  - BODY TEMPERATURE INCREASED [None]
  - CONDITION AGGRAVATED [None]
  - CONTUSION [None]
  - DIFFICULTY IN WALKING [None]
  - HYPOAESTHESIA [None]
  - MULTIPLE SCLEROSIS [None]
  - PAIN [None]
  - SWELLING [None]
